FAERS Safety Report 11231165 (Version 1)
Quarter: 2015Q2

REPORT INFORMATION
  Report Type: Spontaneous
  Country: US (occurrence: None)
  Receive Date: 20150629
  Receipt Date: 20150629
  Transmission Date: 20150821
  Serious: Yes (Life-Threatening, Hospitalization, Disabling, Other)
  Sender: FDA-Public Use
  Company Number: None

PATIENT
  Age: 50 Year
  Sex: Male
  Weight: 106.6 kg

DRUGS (8)
  1. AMIODARONE [Concomitant]
     Active Substance: AMIODARONE
  2. TORSEMIDE. [Concomitant]
     Active Substance: TORSEMIDE
  3. ATENOLOL 100 MG [Suspect]
     Active Substance: ATENOLOL
     Indication: HYPERTENSION
     Route: 048
  4. CARVEDILOL. [Concomitant]
     Active Substance: CARVEDILOL
  5. POTASSIUM CHLORIDE MICROENCA [Concomitant]
  6. CENTRUM SILVER ONE A DAY [Concomitant]
  7. LISINOPRIL. [Concomitant]
     Active Substance: LISINOPRIL
  8. BAYER LOW DOSE [Concomitant]
     Active Substance: ASPIRIN

REACTIONS (8)
  - Fatigue [None]
  - Impaired work ability [None]
  - Quality of life decreased [None]
  - Cardiac failure congestive [None]
  - Heart rate decreased [None]
  - Dizziness [None]
  - Sexual dysfunction [None]
  - Activities of daily living impaired [None]

NARRATIVE: CASE EVENT DATE: 20071023
